FAERS Safety Report 15721544 (Version 1)
Quarter: 2018Q4

REPORT INFORMATION
  Report Type: Spontaneous
  Country: CH (occurrence: CH)
  Receive Date: 20181214
  Receipt Date: 20181214
  Transmission Date: 20190205
  Serious: Yes (Other)
  Sender: FDA-Public Use
  Company Number: CH-EMD SERONO-9058018

PATIENT
  Sex: Female

DRUGS (2)
  1. REBIF [Suspect]
     Active Substance: INTERFERON BETA-1A
     Indication: PRODUCT USED FOR UNKNOWN INDICATION
     Dates: start: 2004, end: 2007
  2. REBIF [Suspect]
     Active Substance: INTERFERON BETA-1A
     Dates: start: 20090202, end: 201810

REACTIONS (1)
  - Nephrotic syndrome [Recovering/Resolving]
